FAERS Safety Report 5730579-9 (Version None)
Quarter: 2008Q2

REPORT INFORMATION
  Report Type: 
  Country: None (occurrence: None)
  Receive Date: 20080507
  Receipt Date: 20080502
  Transmission Date: 20081010
  Serious: Yes (Other)
  Sender: FDA-Public Use
  Company Number: A0726096A

PATIENT
  Age: 66 Year
  Sex: Female

DRUGS (3)
  1. ADVAIR HFA [Suspect]
     Indication: ASTHMA
     Dosage: 1PUFF TWICE PER DAY
     Route: 055
     Dates: start: 20080301
  2. ADVAIR HFA [Suspect]
     Dosage: 1PUFF TWICE PER DAY
     Route: 055
     Dates: start: 20080101, end: 20080101
  3. PREDNISONE TAB [Concomitant]

REACTIONS (7)
  - BLOOD PRESSURE INCREASED [None]
  - DRUG INEFFECTIVE [None]
  - FLUSHING [None]
  - HEADACHE [None]
  - OPHTHALMOPLEGIA [None]
  - PALATAL OEDEMA [None]
  - PHARYNGEAL ERYTHEMA [None]
